FAERS Safety Report 6984555-9 (Version None)
Quarter: 2010Q3

REPORT INFORMATION
  Report Type: 
  Country: None (occurrence: None)
  Receive Date: 20100915
  Receipt Date: 20100902
  Transmission Date: 20110219
  Serious: Yes (Other)
  Sender: FDA-Public Use
  Company Number: US-PFIZER INC-2010078585

PATIENT
  Sex: Female
  Weight: 47.619 kg

DRUGS (22)
  1. XALATAN [Suspect]
     Indication: GLAUCOMA
     Dosage: 1 GTT, 1X/DAY
     Route: 047
     Dates: start: 20100621
  2. XALATAN [Suspect]
     Indication: INTRAOCULAR PRESSURE INCREASED
  3. ERYTHROMYCIN [Concomitant]
     Indication: EYE DISORDER
     Dosage: UNK
     Route: 047
  4. IBANDRONATE SODIUM [Concomitant]
     Indication: OSTEOPOROSIS
     Dosage: UNK
  5. LEVOTHYROXINE [Concomitant]
     Indication: HYPOTHYROIDISM
     Dosage: UNK
  6. FUROSEMIDE [Concomitant]
     Indication: CARDIAC FAILURE CONGESTIVE
     Dosage: 20 MG, DAILY
  7. FUROSEMIDE [Concomitant]
     Indication: HYPERTENSION
  8. SPIRONOLACTONE [Concomitant]
     Indication: CARDIAC FAILURE CONGESTIVE
     Dosage: UNK
  9. SPIRONOLACTONE [Concomitant]
     Indication: HYPERTENSION
  10. GLUCOSAMINE HYDROCHLORIDE/CHONDROITIN SULFATE [Concomitant]
     Indication: ARTHRITIS
     Dosage: UNK
  11. WARFARIN [Concomitant]
     Indication: BLOOD DISORDER
     Dosage: UNK
  12. QUININE [Concomitant]
     Indication: MUSCLE SPASMS
     Dosage: UNK, AS NEEDED
  13. PEPCID [Concomitant]
     Indication: GASTROOESOPHAGEAL REFLUX DISEASE
     Dosage: UNK, AS NEEDED
  14. CARVEDILOL [Concomitant]
     Dosage: UNK
  15. VALSARTAN [Concomitant]
     Dosage: UNK
  16. DICYCLOMINE [Concomitant]
     Dosage: UNK
  17. CALCIUM [Concomitant]
     Dosage: UNK
  18. VITAMIN E [Concomitant]
     Dosage: UNK
  19. ASCORBIC ACID [Concomitant]
     Dosage: UNK
  20. MULTI-VITAMINS [Concomitant]
     Dosage: UNK
  21. TUMS [Concomitant]
     Dosage: UNK
  22. ANUCORT-HC [Concomitant]
     Dosage: UNK

REACTIONS (4)
  - ACCIDENTAL OVERDOSE [None]
  - INCORRECT DOSE ADMINISTERED [None]
  - INTRAOCULAR PRESSURE INCREASED [None]
  - PRODUCT QUALITY ISSUE [None]
